FAERS Safety Report 4711489-2 (Version None)
Quarter: 2005Q3

REPORT INFORMATION
  Report Type: 
  Country: None (occurrence: None)
  Receive Date: 20050711
  Receipt Date: 20050627
  Transmission Date: 20060218
  Serious: Yes (Hospitalization, Other)
  Sender: FDA-Public Use
  Company Number: 2005093147

PATIENT
  Age: 73 Year
  Sex: Female
  Weight: 79.8331 kg

DRUGS (7)
  1. LIPITOR [Suspect]
     Indication: BLOOD CHOLESTEROL INCREASED
     Dosage: 40 MG
  2. CELEBREX [Suspect]
     Indication: OSTEOARTHRITIS
  3. DETROL LA [Suspect]
     Indication: INCONTINENCE
  4. ALL OTHER THERAPEUTIC PRODUCTS (ALL OTHER THERAPEUTIC PRODUCTS) [Suspect]
     Indication: INCONTINENCE
     Dosage: 1 IN 4 D, TRANSDERMAL
     Route: 062
  5. ZETIA [Concomitant]
  6. GABAPENTIN [Concomitant]
  7. ALL OTHER THERAPEUTIC PRODUCTS (ALL OTHER THERAPEUTIC PRODUCTS) [Concomitant]

REACTIONS (6)
  - ASTHENIA [None]
  - DIARRHOEA [None]
  - DYSPEPSIA [None]
  - INCONTINENCE [None]
  - OSTEOARTHRITIS [None]
  - RASH [None]
